FAERS Safety Report 15939811 (Version 3)
Quarter: 2019Q3

REPORT INFORMATION
  Report Type: Spontaneous
  Country: US (occurrence: US)
  Receive Date: 20190208
  Receipt Date: 20190730
  Transmission Date: 20191004
  Serious: Yes (Other)
  Sender: FDA-Public Use
  Company Number: US-ASTRAZENECA-2019SE09468

PATIENT
  Sex: Female
  Weight: 95.3 kg

DRUGS (22)
  1. PREVACID [Suspect]
     Active Substance: LANSOPRAZOLE
     Route: 065
  2. ESTRADIOL. [Concomitant]
     Active Substance: ESTRADIOL
  3. PULMICORT TURBUHALER [Concomitant]
     Active Substance: BUDESONIDE
  4. SYNTHROID [Concomitant]
     Active Substance: LEVOTHYROXINE SODIUM
  5. NEXIUM [Suspect]
     Active Substance: ESOMEPRAZOLE MAGNESIUM
     Dosage: FOR MULTIPLE AND VARIOUS YEARS.
     Route: 048
  6. CELEBREX [Concomitant]
     Active Substance: CELECOXIB
  7. NEXIUM [Suspect]
     Active Substance: ESOMEPRAZOLE MAGNESIUM
     Route: 048
     Dates: start: 20080723
  8. GLYBURIDE. [Concomitant]
     Active Substance: GLYBURIDE
  9. PEPCID [Concomitant]
     Active Substance: FAMOTIDINE
  10. ANUCORT [Concomitant]
  11. HYDROCO/ APAP [Concomitant]
  12. CLONIDINE. [Concomitant]
     Active Substance: CLONIDINE
  13. METFORMIN [Concomitant]
     Active Substance: METFORMIN HYDROCHLORIDE
  14. SIMVASTATIN. [Concomitant]
     Active Substance: SIMVASTATIN
  15. NEXIUM 24HR [Suspect]
     Active Substance: ESOMEPRAZOLE MAGNESIUM
     Route: 048
  16. ANALPRAM [Concomitant]
  17. CEFDINIR. [Concomitant]
     Active Substance: CEFDINIR
  18. AMLODIPINE [Concomitant]
     Active Substance: AMLODIPINE BESYLATE
  19. MOTRIN [Concomitant]
     Active Substance: IBUPROFEN
  20. ASPIRIN. [Concomitant]
     Active Substance: ASPIRIN
  21. HYDROCOD/ IBU [Concomitant]
  22. INDAPAMIDE. [Concomitant]
     Active Substance: INDAPAMIDE

REACTIONS (4)
  - Renal failure [Unknown]
  - Renal injury [Unknown]
  - Acute kidney injury [Unknown]
  - Rebound acid hypersecretion [Unknown]
